FAERS Safety Report 4684471-1 (Version None)
Quarter: 2005Q2

REPORT INFORMATION
  Report Type: 
  Country: None (occurrence: None)
  Receive Date: 20050606
  Receipt Date: 20050521
  Transmission Date: 20051028
  Serious: Yes (Other)
  Sender: FDA-Public Use
  Company Number: 2005077606

PATIENT
  Age: 86 Year
  Sex: Male
  Weight: 86.1834 kg

DRUGS (2)
  1. COOL MINT LISTERINE (MENTHOL, METHYL SALICYLATE, EUCALYPTOL, THYMOL) [Suspect]
     Indication: TOOTHACHE
     Dosage: 1/2 CAPFUL TWICE DAILY, ORAL
     Route: 048
     Dates: end: 20050518
  2. WARFARIN SODIUM [Concomitant]

REACTIONS (4)
  - INTENTIONAL MISUSE [None]
  - SCROTAL INFECTION [None]
  - SKIN INFECTION [None]
  - STAPHYLOCOCCAL INFECTION [None]
